FAERS Safety Report 11897948 (Version 3)
Quarter: 2016Q1

REPORT INFORMATION
  Report Type: Report from Study
  Country: CA (occurrence: CA)
  Receive Date: 20160108
  Receipt Date: 20160122
  Transmission Date: 20160526
  Serious: Yes (Other)
  Sender: FDA-Public Use
  Company Number: CA-ROCHE-1691202

PATIENT
  Sex: Female

DRUGS (15)
  1. PREDNISONE. [Concomitant]
     Active Substance: PREDNISONE
     Indication: PREMEDICATION
     Route: 048
     Dates: start: 20150813
  2. TELMISARTAN. [Concomitant]
     Active Substance: TELMISARTAN
  3. CYCLOBENZAPRINE [Concomitant]
     Active Substance: CYCLOBENZAPRINE
  4. DICLOFENAC GEL [Concomitant]
  5. LYRICA [Concomitant]
     Active Substance: PREGABALIN
  6. ACYCLOVIR. [Concomitant]
     Active Substance: ACYCLOVIR
  7. PREMARIN [Concomitant]
     Active Substance: ESTROGENS, CONJUGATED
  8. HYDROMORPHONE [Concomitant]
     Active Substance: HYDROMORPHONE
  9. LEUCOVORIN. [Concomitant]
     Active Substance: LEUCOVORIN
  10. DIPHENHYDRAMINE HCL [Concomitant]
     Active Substance: DIPHENHYDRAMINE HYDROCHLORIDE
     Indication: PREMEDICATION
     Route: 048
     Dates: start: 20150813
  11. ACETAMINOPHEN. [Concomitant]
     Active Substance: ACETAMINOPHEN
     Indication: PREMEDICATION
     Route: 048
     Dates: start: 20150813
  12. RITUXAN [Suspect]
     Active Substance: RITUXIMAB
     Indication: RHEUMATOID ARTHRITIS
     Route: 042
     Dates: start: 20150813
  13. MELOXICAM. [Concomitant]
     Active Substance: MELOXICAM
  14. METHOTREXATE [Concomitant]
     Active Substance: METHOTREXATE
  15. BISOPROLOL [Concomitant]
     Active Substance: BISOPROLOL

REACTIONS (1)
  - Hepatic enzyme increased [Recovered/Resolved]
